FAERS Safety Report 7300751-5 (Version None)
Quarter: 2011Q1

REPORT INFORMATION
  Report Type: 
  Country: None (occurrence: None)
  Receive Date: 20110207
  Receipt Date: 20110131
  Transmission Date: 20110831
  Serious: Yes (Other)
  Sender: FDA-Public Use
  Company Number: 2011SP004742

PATIENT
  Age: 75 Year
  Sex: Female

DRUGS (8)
  1. VITAMIN A + E [Concomitant]
  2. SIGMA [Concomitant]
  3. SYNTHROID [Concomitant]
  4. ORMIGREIN (ORMIGREIN) [Suspect]
     Indication: MIGRAINE
     Dosage: 1 DF; PRN; PO, .5;DF;PRN;PO
     Route: 048
     Dates: start: 19800101
  5. RIVOTRIL [Concomitant]
  6. METOPROLOL TARTRATE [Concomitant]
  7. ATACAND [Concomitant]
  8. NEXIUM [Concomitant]

REACTIONS (9)
  - DRUG INEFFECTIVE [None]
  - NERVOUS SYSTEM DISORDER [None]
  - VISUAL IMPAIRMENT [None]
  - BLOOD PRESSURE DECREASED [None]
  - GAIT DISTURBANCE [None]
  - JOINT SWELLING [None]
  - SCIATIC NERVE NEUROPATHY [None]
  - VEIN PAIN [None]
  - LUMBAR HERNIA [None]
